FAERS Safety Report 24154766 (Version 1)
Quarter: 2024Q3

REPORT INFORMATION
  Report Type: Spontaneous
  Country: FR (occurrence: FR)
  Receive Date: 20240731
  Receipt Date: 20240731
  Transmission Date: 20241017
  Serious: Yes (Life-Threatening)
  Sender: JOHNSON AND JOHNSON
  Company Number: None

PATIENT
  Age: 56 Year
  Sex: Female
  Weight: 94 kg

DRUGS (4)
  1. RISPERDAL [Suspect]
     Active Substance: RISPERIDONE
     Indication: Schizoaffective disorder
     Dosage: 2MG, FROM 03/25 3MG, FROM 03/28: 4MG, STOPPED ON 04/10, 04/15 4MG, STOPPED ON 04/17, RESUMED ON 05/2
     Route: 048
  2. ZUCLOPENTHIXOL ACETATE [Suspect]
     Active Substance: ZUCLOPENTHIXOL ACETATE
     Indication: Psychotic disorder
     Dosage: 1 DOSE LE 25/03 + 1 DOSE LE 28/03
     Route: 030
     Dates: start: 20240325, end: 20240328
  3. CEFTRIAXONE SODIUM [Suspect]
     Active Substance: CEFTRIAXONE SODIUM
     Indication: Antibiotic therapy
     Dosage: NR
     Route: 065
     Dates: start: 20240328, end: 20240404
  4. LOXAPINE [Suspect]
     Active Substance: LOXAPINE
     Indication: Psychotic disorder
     Dosage: 24/03 : 50 MG + 30 MG 3 FOIS/J, 25/03 : 50 MG 3 FOIS PAR JOUR
     Route: 048
     Dates: start: 20240324, end: 20240410

REACTIONS (1)
  - Toxic encephalopathy [Recovering/Resolving]

NARRATIVE: CASE EVENT DATE: 20240408
